FAERS Safety Report 12365091 (Version 1)
Quarter: 2016Q2

REPORT INFORMATION
  Report Type: Spontaneous
  Country: GB (occurrence: GB)
  Receive Date: 20160513
  Receipt Date: 20160513
  Transmission Date: 20160815
  Serious: Yes (Other)
  Sender: FDA-Public Use
  Company Number: GB-ROCHE-1757313

PATIENT
  Age: 55 Year
  Sex: Female

DRUGS (2)
  1. HERCEPTIN [Suspect]
     Active Substance: TRASTUZUMAB
     Indication: PRODUCT USED FOR UNKNOWN INDICATION
     Route: 058
     Dates: start: 201505
  2. DOCETAXEL. [Concomitant]
     Active Substance: DOCETAXEL

REACTIONS (4)
  - Cardiac disorder [Unknown]
  - Flushing [Unknown]
  - Swelling face [Unknown]
  - Peripheral swelling [Unknown]
